FAERS Safety Report 14341254 (Version 7)
Quarter: 2018Q4

REPORT INFORMATION
  Report Type: Report from Study
  Country: None (occurrence: BE)
  Receive Date: 20180102
  Receipt Date: 20181024
  Transmission Date: 20190204
  Serious: Yes (Hospitalization, Other)
  Sender: FDA-Public Use
  Company Number: BE-ABBVIE-18K-013-2208782-00

PATIENT
  Sex: Female

DRUGS (23)
  1. ALPRAZOLAM. [Concomitant]
     Active Substance: ALPRAZOLAM
     Indication: PRODUCT USED FOR UNKNOWN INDICATION
  2. DUODOPA [Suspect]
     Active Substance: CARBIDOPA\LEVODOPA
     Dosage: MD: 2.3 ML, CD: 1 UP TO 4 ML/HR DURING 16 HRS, ED: 2.5 UP TO 4 ML
     Route: 050
     Dates: start: 20171012, end: 20180103
  3. DUODOPA [Suspect]
     Active Substance: CARBIDOPA\LEVODOPA
     Dosage: MD=2.3ML, CD=1.1ML/HR DURING 16HRS, ED=1.3ML
     Route: 050
     Dates: start: 20181018
  4. ASPIRIN. [Concomitant]
     Active Substance: ASPIRIN
     Indication: PRODUCT USED FOR UNKNOWN INDICATION
  5. PROTELOS [Concomitant]
     Active Substance: STRONTIUM RANELATE
     Indication: PRODUCT USED FOR UNKNOWN INDICATION
     Dosage: ON AN EMPTY STOMACH
  6. SEROQUEL [Concomitant]
     Active Substance: QUETIAPINE FUMARATE
     Indication: PRODUCT USED FOR UNKNOWN INDICATION
  7. AMANTADINE. [Concomitant]
     Active Substance: AMANTADINE HYDROCHLORIDE
     Indication: PRODUCT USED FOR UNKNOWN INDICATION
  8. XADAGO [Concomitant]
     Active Substance: SAFINAMIDE MESYLATE
     Indication: PRODUCT USED FOR UNKNOWN INDICATION
  9. DUODOPA [Suspect]
     Active Substance: CARBIDOPA\LEVODOPA
     Indication: PARKINSON^S DISEASE
     Route: 050
     Dates: start: 20121015, end: 20121106
  10. DUODOPA [Suspect]
     Active Substance: CARBIDOPA\LEVODOPA
     Dosage: MD=1.8ML, CD=BETWEEN 1.1 AND 3ML/HR DURING 16HRSM, ED=BETWEEN 1.5 AND 3ML
     Route: 050
     Dates: start: 20180307, end: 20180315
  11. ZANIDIP [Concomitant]
     Active Substance: LERCANIDIPINE HYDROCHLORIDE
     Indication: PRODUCT USED FOR UNKNOWN INDICATION
  12. VENLAFAXINE [Concomitant]
     Active Substance: VENLAFAXINE HYDROCHLORIDE
     Indication: PRODUCT USED FOR UNKNOWN INDICATION
  13. DUODOPA [Suspect]
     Active Substance: CARBIDOPA\LEVODOPA
     Dosage: DOSES CONTINUOUSLY MONITORED AND ADAPTED
     Route: 050
     Dates: start: 20130123, end: 20171012
  14. L-THYROXINE [Concomitant]
     Active Substance: LEVOTHYROXINE
     Indication: PRODUCT USED FOR UNKNOWN INDICATION
  15. OMEPRAZOLE. [Concomitant]
     Active Substance: OMEPRAZOLE
     Indication: PRODUCT USED FOR UNKNOWN INDICATION
  16. FERO-GRAD [Concomitant]
     Active Substance: FERROUS SULFATE\SODIUM ASCORBATE
     Indication: PRODUCT USED FOR UNKNOWN INDICATION
  17. DUODOPA [Suspect]
     Active Substance: CARBIDOPA\LEVODOPA
     Dosage: MD: 2.8 ML, CD: 1.4 ML/HR DURING 16 HRS, ED: 1 ML
     Route: 050
     Dates: start: 20121106, end: 20130123
  18. DUODOPA [Suspect]
     Active Substance: CARBIDOPA\LEVODOPA
     Dosage: MD: 2.8 ML, CD: 0.8 ML/HR DURING 16 HRS, ED: 1.5 ML
     Route: 050
     Dates: start: 20180103, end: 20180108
  19. DUODOPA [Suspect]
     Active Substance: CARBIDOPA\LEVODOPA
     Dosage: MD=1.8ML CD=1ML/HR DURING 16HRS ED=1ML
     Route: 050
     Dates: start: 20180108, end: 20180307
  20. DUODOPA [Suspect]
     Active Substance: CARBIDOPA\LEVODOPA
     Dosage: MD=1.5ML, CD=1.2ML/HR DURING 16HRS, ED=1.5ML
     Route: 050
     Dates: start: 20180315, end: 20180724
  21. DUODOPA [Suspect]
     Active Substance: CARBIDOPA\LEVODOPA
     Dosage: MD=1.8ML, CD=1.3 (AM) -1.5(PM)ML/HR DURING 16HRS, ED=BETWEEN 1.5 AND 3ML
     Route: 050
     Dates: start: 20180724, end: 20181010
  22. DUODOPA [Suspect]
     Active Substance: CARBIDOPA\LEVODOPA
     Dosage: MD=2.3ML, CD=0.9ML/HR DURING 16HRS, ED=1.3ML
     Route: 050
     Dates: start: 20181010, end: 20181018
  23. LEPONEX [Concomitant]
     Active Substance: CLOZAPINE
     Indication: PRODUCT USED FOR UNKNOWN INDICATION

REACTIONS (4)
  - General physical health deterioration [Recovering/Resolving]
  - Dyskinesia [Not Recovered/Not Resolved]
  - Anaemia [Unknown]
  - Confusional state [Unknown]
